FAERS Safety Report 6529621-7 (Version None)
Quarter: 2010Q1

REPORT INFORMATION
  Report Type: 
  Country: None (occurrence: None)
  Receive Date: 20100107
  Receipt Date: 20091228
  Transmission Date: 20100710
  Serious: Yes (Hospitalization)
  Sender: FDA-Public Use
  Company Number: JP-SANOFI-AVENTIS-200912895JP

PATIENT
  Age: 60 Year
  Sex: Male

DRUGS (2)
  1. RILUZOLE [Suspect]
     Route: 048
     Dates: start: 20090930
  2. ZYLORIC [Concomitant]
     Route: 048

REACTIONS (1)
  - RASH GENERALISED [None]
